FAERS Safety Report 4822841-9 (Version None)
Quarter: 2005Q4

REPORT INFORMATION
  Report Type: 
  Country: None (occurrence: None)
  Receive Date: 20051108
  Receipt Date: 20040420
  Transmission Date: 20060501
  Serious: Yes (Life-Threatening, Hospitalization)
  Sender: FDA-Public Use
  Company Number: GB-SANOFI-SYNTHELABO-F01200400818

PATIENT
  Sex: Female
  Weight: 45.5 kg

DRUGS (10)
  1. OXALIPLATIN [Suspect]
     Route: 042
     Dates: start: 20040329, end: 20040329
  2. FLUOROURACIL [Suspect]
     Route: 042
     Dates: start: 20040329, end: 20040331
  3. LEUCOVORIN [Suspect]
     Route: 042
     Dates: start: 20040329, end: 20040330
  4. LANSOPRAZOLE [Concomitant]
  5. ACETAMINOPHEN [Concomitant]
  6. CODYDRAMOL [Concomitant]
  7. METOCLOPRAMIDE [Concomitant]
     Route: 065
     Dates: start: 20040424, end: 20040425
  8. DIAMORPHINE [Concomitant]
     Dates: start: 20040422
  9. CYCLIZINE [Concomitant]
     Dates: start: 20040422, end: 20040422
  10. DEXAMETHASONE [Concomitant]
     Dates: start: 20040422, end: 20040425

REACTIONS (8)
  - ABDOMINAL PAIN [None]
  - DEHYDRATION [None]
  - DIARRHOEA [None]
  - DISEASE PROGRESSION [None]
  - ORAL CANDIDIASIS [None]
  - SEPTIC SHOCK [None]
  - TACHYCARDIA [None]
  - VOMITING [None]
